FAERS Safety Report 9476712 (Version 1)
Quarter: 2013Q3

REPORT INFORMATION
  Report Type: Spontaneous
  Country: US (occurrence: US)
  Receive Date: 20130826
  Receipt Date: 20130826
  Transmission Date: 20140515
  Serious: No
  Sender: FDA-Public Use
  Company Number: US-BRISTOL-MYERS SQUIBB COMPANY-17020959

PATIENT
  Age: 37 Year
  Sex: Female
  Weight: 70.29 kg

DRUGS (1)
  1. KENALOG-40 INJ [Suspect]
     Dosage: TOTAL RECEIVED: 3.
     Route: 008

REACTIONS (1)
  - Drug ineffective [Unknown]
